FAERS Safety Report 6878009-8 (Version None)
Quarter: 2010Q3

REPORT INFORMATION
  Report Type: 
  Country: None (occurrence: None)
  Receive Date: 20100727
  Receipt Date: 20100713
  Transmission Date: 20110219
  Serious: Yes (Hospitalization)
  Sender: FDA-Public Use
  Company Number: US-ELI_LILLY_AND_COMPANY-US201007003151

PATIENT
  Sex: Female

DRUGS (7)
  1. EVISTA [Suspect]
     Indication: OSTEOPOROSIS
     Dosage: 60 MG, DAILY (1/D)
     Dates: end: 20100622
  2. LEVOXYL [Concomitant]
  3. EFFEXOR [Concomitant]
  4. MOBIC [Concomitant]
  5. PROTONIX [Concomitant]
  6. METOPROLOL [Concomitant]
  7. VITAMINS [Concomitant]

REACTIONS (9)
  - ARTHRALGIA [None]
  - FOOT DEFORMITY [None]
  - HEART RATE IRREGULAR [None]
  - HOT FLUSH [None]
  - HYPERHIDROSIS [None]
  - HYPOAESTHESIA [None]
  - MALAISE [None]
  - MUSCLE SPASMS [None]
  - STRESS [None]
